FAERS Safety Report 13000379 (Version 2)
Quarter: 2016Q4

REPORT INFORMATION
  Report Type: Spontaneous
  Country: CO (occurrence: CO)
  Receive Date: 20161206
  Receipt Date: 20161206
  Transmission Date: 20170207
  Serious: Yes (Hospitalization)
  Sender: FDA-Public Use
  Company Number: US-ASTRAZENECA-2016SF28234

PATIENT

DRUGS (3)
  1. PULMONARY SURFACTANT [Concomitant]
  2. OXYGEN. [Concomitant]
     Active Substance: OXYGEN
  3. SYNAGIS [Suspect]
     Active Substance: PALIVIZUMAB
     Indication: PRODUCT USED FOR UNKNOWN INDICATION
     Route: 030
     Dates: start: 20161006

REACTIONS (1)
  - Bronchiolitis [Not Recovered/Not Resolved]
